FAERS Safety Report 7138042-8 (Version None)
Quarter: 2010Q4

REPORT INFORMATION
  Report Type: 
  Country: None (occurrence: None)
  Receive Date: 20101103
  Receipt Date: 20100916
  Transmission Date: 20110411
  Serious: Yes (Other)
  Sender: FDA-Public Use
  Company Number: US-WYE-H17587410

PATIENT
  Age: 35 Year
  Sex: Female

DRUGS (1)
  1. EFFEXOR XR [Suspect]
     Dosage: 150 MG 2X PER 1 DAY, ORAL
     Route: 048
     Dates: start: 20060101

REACTIONS (4)
  - ANTISOCIAL BEHAVIOUR [None]
  - CRYING [None]
  - DRUG EFFECT DECREASED [None]
  - SUICIDAL IDEATION [None]
